FAERS Safety Report 6142511-7 (Version None)
Quarter: 2009Q2

REPORT INFORMATION
  Report Type: 
  Country: None (occurrence: None)
  Receive Date: 20090401
  Receipt Date: 20090401
  Transmission Date: 20091009
  Serious: Yes (Death)
  Sender: FDA-Public Use
  Company Number: None

PATIENT
  Age: 36 Year
  Sex: Female
  Weight: 54.4316 kg

DRUGS (4)
  1. XIGRIS [Suspect]
     Indication: PNEUMONIA STAPHYLOCOCCAL
     Dates: start: 20070102, end: 20070105
  2. XIGRIS [Suspect]
     Indication: PNEUMONIA STREPTOCOCCAL
     Dates: start: 20070102, end: 20070105
  3. XIGRIS [Suspect]
     Indication: SEPSIS
     Dates: start: 20070102, end: 20070105
  4. DRTRECOGIN ALPHA -XIGRIS [Concomitant]

REACTIONS (1)
  - CEREBRAL HAEMORRHAGE [None]
